FAERS Safety Report 6783165-6 (Version None)
Quarter: 2010Q2

REPORT INFORMATION
  Report Type: 
  Country: None (occurrence: None)
  Receive Date: 20100622
  Receipt Date: 20100610
  Transmission Date: 20101027
  Serious: Yes (Other)
  Sender: FDA-Public Use
  Company Number: CA-PFIZER INC-2010072841

PATIENT
  Sex: Male

DRUGS (3)
  1. ZELDOX [Suspect]
     Dosage: 80 MG, 2X/DAY
  2. CLONAZEPAM [Concomitant]
     Indication: SLEEP DISORDER
     Dosage: UNK
  3. ZOPICLONE [Concomitant]
     Indication: SLEEP DISORDER
     Dosage: UNK

REACTIONS (3)
  - FATIGUE [None]
  - LIBIDO DECREASED [None]
  - SLEEP DISORDER [None]
